FAERS Safety Report 11761367 (Version 1)
Quarter: 2015Q4

REPORT INFORMATION
  Report Type: Report from Study
  Country: BR (occurrence: BR)
  Receive Date: 20151120
  Receipt Date: 20151120
  Transmission Date: 20160304
  Serious: Yes (Other)
  Sender: FDA-Public Use
  Company Number: BR-GLAXOSMITHKLINE-BR2015GSK164330

PATIENT
  Sex: Female
  Weight: 74 kg

DRUGS (8)
  1. EZETROL (EZETIMIBE) [Concomitant]
     Active Substance: EZETIMIBE
     Indication: BLOOD CHOLESTEROL
     Dosage: 1 UNK, QD
     Route: 048
     Dates: start: 20071116
  2. SOYA ISOFLAVONES [Concomitant]
     Active Substance: ISOFLAVONES SOY
     Indication: MENOPAUSE
     Dosage: 1 UNK, QD
     Route: 048
     Dates: start: 20150916
  3. FLUTICASONE PROPIONATE+SALMETEROL XINAFOATE [Suspect]
     Active Substance: FLUTICASONE PROPIONATE\SALMETEROL XINAFOATE
     Indication: BRONCHIAL HYPERREACTIVITY
     Dosage: 1 PUFF(S), BID
     Route: 055
  4. SERTRALINE HYDROCHLORIDE. [Concomitant]
     Active Substance: SERTRALINE HYDROCHLORIDE
     Indication: PRODUCT USED FOR UNKNOWN INDICATION
     Dosage: 1 UNK, QD
     Route: 048
     Dates: start: 20031116
  5. VITAMIN D [Concomitant]
     Active Substance: CHOLECALCIFEROL
     Indication: VITAMIN SUPPLEMENTATION
     Dosage: 6 UNK, UNK
     Route: 048
     Dates: start: 20141116
  6. HYDROCHLOROTHIAZIDE + LOSARTAN POTASSIUM [Concomitant]
     Indication: BLOOD PRESSURE ABNORMAL
     Dosage: 1 UNK, QD
     Route: 048
     Dates: start: 20150916
  7. CRESTOR [Concomitant]
     Active Substance: ROSUVASTATIN CALCIUM
     Indication: BLOOD CHOLESTEROL
     Dosage: 1 UNK, QD
     Route: 048
     Dates: start: 20071116
  8. ANGELIQ (DROSPIRENONE + ESTRADIOL) [Concomitant]
     Indication: MENOPAUSE
     Dosage: UNK
     Route: 048

REACTIONS (5)
  - Weight increased [Not Recovered/Not Resolved]
  - Inappropriate schedule of drug administration [Unknown]
  - Genital haemorrhage [Recovered/Resolved]
  - Overdose [Not Recovered/Not Resolved]
  - Product use issue [Not Recovered/Not Resolved]
